FAERS Safety Report 15720765 (Version 1)
Quarter: 2018Q4

REPORT INFORMATION
  Report Type: Report from Study
  Country: None (occurrence: US)
  Receive Date: 20181213
  Receipt Date: 20181213
  Transmission Date: 20190205
  Serious: Yes (Other)
  Sender: FDA-Public Use
  Company Number: US-ABBVIE-18K-163-2583281-00

PATIENT
  Age: 60 Year
  Sex: Female

DRUGS (2)
  1. HUMIRA [Suspect]
     Active Substance: ADALIMUMAB
     Indication: RHEUMATOID ARTHRITIS
     Route: 058
     Dates: end: 201811
  2. HUMIRA [Suspect]
     Active Substance: ADALIMUMAB
     Route: 058
     Dates: start: 201812

REACTIONS (6)
  - Oesophageal carcinoma [Unknown]
  - Post procedural infection [Unknown]
  - Injection site pain [Unknown]
  - Post procedural haemorrhage [Unknown]
  - Weight decreased [Unknown]
  - Radiation injury [Unknown]

NARRATIVE: CASE EVENT DATE: 2018
